FAERS Safety Report 5016496-0 (Version None)
Quarter: 2006Q2

REPORT INFORMATION
  Report Type: 
  Country: None (occurrence: None)
  Receive Date: 20060602
  Receipt Date: 20060526
  Transmission Date: 20061013
  Serious: Yes (Disabling)
  Sender: FDA-Public Use
  Company Number: NL-BRISTOL-MYERS SQUIBB COMPANY-13392790

PATIENT
  Age: 60 Year
  Sex: Female

DRUGS (2)
  1. MITOMYCIN [Suspect]
     Indication: BLADDER CANCER
     Route: 043
     Dates: start: 20040823, end: 20040823
  2. MITOMYCIN [Suspect]
     Route: 043
     Dates: start: 20041115, end: 20041115

REACTIONS (1)
  - BLADDER DISORDER [None]
